FAERS Safety Report 5735904-0 (Version None)
Quarter: 2008Q2

REPORT INFORMATION
  Report Type: 
  Country: None (occurrence: None)
  Receive Date: 20080513
  Receipt Date: 20080505
  Transmission Date: 20081010
  Serious: Yes (Other)
  Sender: FDA-Public Use
  Company Number: US-ABBOTT-08P-163-0450420-00

PATIENT
  Sex: Female
  Weight: 54.48 kg

DRUGS (3)
  1. HUMIRA [Suspect]
     Indication: CROHN'S DISEASE
     Route: 058
     Dates: start: 20060101, end: 20070901
  2. HUMIRA [Suspect]
     Indication: CROHN'S DISEASE
     Route: 058
     Dates: start: 20080426
  3. OTHER MEDICATIONS FOR CROHN'S DISEASE [Concomitant]
     Indication: CROHN'S DISEASE
     Dates: start: 20080101, end: 20080401

REACTIONS (6)
  - ACCIDENTAL NEEDLE STICK [None]
  - CROHN'S DISEASE [None]
  - INJECTION SITE PAIN [None]
  - PAIN [None]
  - SMALL INTESTINAL RESECTION [None]
  - UNDERDOSE [None]
